FAERS Safety Report 9279021 (Version 1)
Quarter: 2013Q2

REPORT INFORMATION
  Report Type: Spontaneous
  Country: ES (occurrence: None)
  Receive Date: 20130506
  Receipt Date: 20130506
  Transmission Date: 20140414
  Serious: Yes (Death, Hospitalization)
  Sender: FDA-Public Use
  Company Number: 2013P1005127

PATIENT
  Age: 67 Year
  Sex: Male

DRUGS (6)
  1. TRANEXAMIC ACID [Suspect]
     Route: 048
  2. SPIRONOLACTONE [Concomitant]
  3. FUROSEMIDE [Concomitant]
  4. OMEPRAZOLE [Concomitant]
  5. LACTULOSE [Concomitant]
  6. BISOPROLOL [Concomitant]

REACTIONS (6)
  - Toxic epidermal necrolysis [None]
  - Hypotension [None]
  - Renal failure [None]
  - Respiratory tract infection [None]
  - Haemofiltration [None]
  - Multi-organ failure [None]
